FAERS Safety Report 13745644 (Version 4)
Quarter: 2017Q4

REPORT INFORMATION
  Report Type: Other
  Country: US (occurrence: US)
  Receive Date: 20170712
  Receipt Date: 20171002
  Transmission Date: 20180320
  Serious: Yes (Death, Hospitalization, Other)
  Sender: FDA-Public Use
  Company Number: US-UNITED THERAPEUTICS-UNT-2017-009956

PATIENT
  Age: 85 Year
  Sex: Male
  Weight: 61.22 kg

DRUGS (5)
  1. OPSUMIT [Concomitant]
     Active Substance: MACITENTAN
     Indication: PRODUCT USED FOR UNKNOWN INDICATION
  2. REMODULIN [Suspect]
     Active Substance: TREPROSTINIL
     Indication: PULMONARY ARTERIAL HYPERTENSION
     Dosage: 0.070 ?G/KG, CONTINUING
     Route: 058
     Dates: start: 20151006
  3. REMODULIN [Suspect]
     Active Substance: TREPROSTINIL
     Dosage: 0.063 ?G/KG, CONTINUING
     Route: 058
  4. METOLAZONE. [Suspect]
     Active Substance: METOLAZONE
     Indication: PRODUCT USED FOR UNKNOWN INDICATION
     Route: 065
  5. ADCIRCA [Concomitant]
     Active Substance: TADALAFIL
     Indication: PRODUCT USED FOR UNKNOWN INDICATION

REACTIONS (5)
  - Blood pressure decreased [Not Recovered/Not Resolved]
  - Pulmonary arterial hypertension [Fatal]
  - Blood creatinine increased [Recovered/Resolved]
  - Cardiac failure [Not Recovered/Not Resolved]
  - General physical health deterioration [Unknown]

NARRATIVE: CASE EVENT DATE: 20170625
